FAERS Safety Report 5716398-8 (Version None)
Quarter: 2008Q2

REPORT INFORMATION
  Report Type: 
  Country: None (occurrence: None)
  Receive Date: 20080415
  Receipt Date: 20080221
  Transmission Date: 20081010
  Serious: Yes (Other)
  Sender: FDA-Public Use
  Company Number: PHEH2008US02084

PATIENT
  Sex: Male

DRUGS (1)
  1. EXFORGE [Suspect]
     Indication: HYPERTENSION
     Dosage: 10MG/AMLO/160MG/VAL
     Dates: start: 20080201, end: 20080201

REACTIONS (2)
  - HEART RATE INCREASED [None]
  - HYPERTENSION [None]
